FAERS Safety Report 4828117-8 (Version None)
Quarter: 2005Q4

REPORT INFORMATION
  Report Type: 
  Country: None (occurrence: None)
  Receive Date: 20051110
  Receipt Date: 20051031
  Transmission Date: 20060501
  Serious: Yes (Other)
  Sender: FDA-Public Use
  Company Number: 2005148672

PATIENT
  Age: 44 Year
  Sex: Male
  Weight: 58.9676 kg

DRUGS (2)
  1. COOL MINT LISTERINE (MENTHOL, METHYL SALICYLATE, EUCALYPTOL, THYMOL) [Suspect]
     Dosage: 1 WHOLE BOTTLE ONCE, ORAL
     Route: 048
     Dates: start: 20051030, end: 20051030
  2. ETHANOL (ETHANOL) [Suspect]
     Dosage: ORAL
     Route: 048

REACTIONS (6)
  - CONFUSIONAL STATE [None]
  - ERYTHEMA [None]
  - FEELING ABNORMAL [None]
  - PALLOR [None]
  - POLYSUBSTANCE ABUSE [None]
  - VOMITING [None]
